FAERS Safety Report 5772993-1 (Version None)
Quarter: 2008Q2

REPORT INFORMATION
  Report Type: 
  Country: None (occurrence: None)
  Receive Date: 20080611
  Receipt Date: 20080527
  Transmission Date: 20081010
  Serious: Yes (Death)
  Sender: FDA-Public Use
  Company Number: OPER20080109

PATIENT
  Age: 49 Year
  Sex: Female
  Weight: 44.4525 kg

DRUGS (12)
  1. OPANA ER [Suspect]
     Indication: PAIN IN EXTREMITY
     Dosage: 10 MG, 1 TAB BID, PER ORAL
     Route: 048
     Dates: start: 20080201
  2. LORCET-HD [Suspect]
     Indication: BREAKTHROUGH PAIN
     Dosage: 10 MG, Q 4 TO 6 HOURS PRN
  3. LANTUS [Concomitant]
  4. NOVOLOG [Concomitant]
  5. ZONEGRAN [Concomitant]
  6. TRILEPTAL [Concomitant]
  7. CYMBALTA [Concomitant]
  8. XANAX [Concomitant]
  9. PLAVIX [Concomitant]
  10. PREVACID [Concomitant]
  11. HYZAAR [Concomitant]
  12. LYRICA [Concomitant]

REACTIONS (7)
  - DIABETES MELLITUS INADEQUATE CONTROL [None]
  - DIABETIC COMPLICATION [None]
  - DRUG INTERACTION [None]
  - MALAISE [None]
  - PAIN IN EXTREMITY [None]
  - RESTLESSNESS [None]
  - VOMITING [None]
